FAERS Safety Report 6402591-8 (Version None)
Quarter: 2009Q4

REPORT INFORMATION
  Report Type: 
  Country: None (occurrence: None)
  Receive Date: 20091009
  Receipt Date: 20090930
  Transmission Date: 20100525
  Serious: Yes (Hospitalization)
  Sender: FDA-Public Use
  Company Number: ADR34772009

PATIENT
  Age: 43 Year

DRUGS (10)
  1. CIPROFLOXACIN [Suspect]
     Dosage: 800 MG, INTRAVENOUS
     Route: 042
     Dates: start: 20061214, end: 20061214
  2. CYCLIZINE [Concomitant]
  3. DICLOFENAC [Concomitant]
  4. IRON [Concomitant]
  5. DALTEPARIN [Concomitant]
  6. METRONIDAZOLE [Concomitant]
  7. MORPHINE [Concomitant]
  8. OMEPRAZOLE [Concomitant]
  9. ONDANSETRON [Concomitant]
  10. PARACETAMOL [Concomitant]

REACTIONS (5)
  - DEHYDRATION [None]
  - DIZZINESS [None]
  - NAUSEA [None]
  - TINNITUS [None]
  - VOMITING [None]
